FAERS Safety Report 6405151-8 (Version None)
Quarter: 2009Q4

REPORT INFORMATION
  Report Type: 
  Country: None (occurrence: None)
  Receive Date: 20091019
  Receipt Date: 20091008
  Transmission Date: 20100525
  Serious: Yes (Hospitalization)
  Sender: FDA-Public Use
  Company Number: CH-ASTRAZENECA-2009SE19250

PATIENT
  Age: 65 Year
  Sex: Female

DRUGS (12)
  1. SEROQUEL XR [Suspect]
     Route: 048
     Dates: start: 20090404, end: 20090420
  2. SEROQUEL XR [Suspect]
     Route: 048
     Dates: start: 20090421, end: 20090505
  3. SEROQUEL XR [Suspect]
     Route: 048
     Dates: start: 20090506, end: 20090512
  4. SEROQUEL XR [Suspect]
     Route: 048
     Dates: start: 20090513, end: 20090519
  5. BELOC-ZOK [Concomitant]
     Route: 048
     Dates: start: 20090405
  6. NEXIUM [Concomitant]
     Route: 048
     Dates: start: 20090409
  7. TEMESTA [Concomitant]
     Route: 048
     Dates: start: 20090501, end: 20090514
  8. ASPIRIN [Concomitant]
     Route: 048
     Dates: start: 20090408
  9. CONDROSULF [Concomitant]
     Route: 048
     Dates: start: 20090508
  10. FLUANXOL [Concomitant]
     Route: 048
     Dates: start: 20090423, end: 20090423
  11. FLUANXOL [Concomitant]
     Route: 048
     Dates: start: 20090424, end: 20090503
  12. BONIVA [Concomitant]
     Route: 048
     Dates: start: 20090512, end: 20090512

REACTIONS (1)
  - HEPATIC ENZYME INCREASED [None]
